FAERS Safety Report 8795232 (Version 2)
Quarter: 2015Q2

REPORT INFORMATION
  Report Type: Report from Study
  Country: US (occurrence: US)
  Receive Date: 20120918
  Receipt Date: 20150629
  Transmission Date: 20150821
  Serious: Yes (Death)
  Sender: FDA-Public Use
  Company Number: US-ROCHE-1124262

PATIENT
  Sex: Female

DRUGS (28)
  1. AVASTIN [Suspect]
     Active Substance: BEVACIZUMAB
     Indication: BREAST CANCER FEMALE
     Route: 042
     Dates: start: 20040809
  2. ZOMETA [Concomitant]
     Active Substance: ZOLEDRONIC ACID
     Route: 042
     Dates: start: 200109
  3. ANZEMET [Concomitant]
     Active Substance: DOLASETRON MESYLATE
     Route: 042
  4. KLOR-CON [Concomitant]
     Active Substance: POTASSIUM CHLORIDE
     Route: 048
  5. LOMOTIL (UNITED STATES) [Concomitant]
     Dosage: 2.5-0.25 MG 1-2 TABLETS AS NEEDED
     Route: 048
  6. AVASTIN [Suspect]
     Active Substance: BEVACIZUMAB
     Indication: BREAST CANCER FEMALE
  7. NAVELBINE [Concomitant]
     Active Substance: VINORELBINE TARTRATE
     Route: 065
  8. DOXIL [Concomitant]
     Active Substance: DOXORUBICIN HYDROCHLORIDE
     Route: 065
  9. LASIX [Concomitant]
     Active Substance: FUROSEMIDE
     Route: 048
  10. GEMCITABINE [Suspect]
     Active Substance: GEMCITABINE\GEMCITABINE HYDROCHLORIDE
     Route: 042
  11. DEXAMETHASONE. [Concomitant]
     Active Substance: DEXAMETHASONE
     Route: 042
  12. AROMASIN [Concomitant]
     Active Substance: EXEMESTANE
     Dosage: AS DIRECTED
     Route: 048
  13. NEXIUM [Concomitant]
     Active Substance: ESOMEPRAZOLE MAGNESIUM
     Route: 048
  14. GEMCITABINE [Suspect]
     Active Substance: GEMCITABINE\GEMCITABINE HYDROCHLORIDE
     Indication: PRODUCT USED FOR UNKNOWN INDICATION
     Route: 042
  15. GEMCITABINE [Suspect]
     Active Substance: GEMCITABINE\GEMCITABINE HYDROCHLORIDE
     Route: 042
  16. GEMCITABINE [Suspect]
     Active Substance: GEMCITABINE\GEMCITABINE HYDROCHLORIDE
     Route: 042
  17. ARANESP [Concomitant]
     Active Substance: DARBEPOETIN ALFA
     Indication: ANAEMIA
     Route: 042
  18. SPIRONOLACTONE. [Concomitant]
     Active Substance: SPIRONOLACTONE
     Route: 048
  19. HERCEPTIN [Suspect]
     Active Substance: TRASTUZUMAB
     Indication: PRODUCT USED FOR UNKNOWN INDICATION
     Route: 065
     Dates: start: 200110, end: 200303
  20. GEMCITABINE [Suspect]
     Active Substance: GEMCITABINE\GEMCITABINE HYDROCHLORIDE
     Route: 042
  21. GEMCITABINE [Suspect]
     Active Substance: GEMCITABINE\GEMCITABINE HYDROCHLORIDE
     Route: 042
  22. LORTAB (UNITED STATES) [Concomitant]
     Indication: PAIN
     Dosage: 5-500 MG EVERY 4-6 HOURS AS NEEDED
     Route: 048
  23. ANZEMET [Concomitant]
     Active Substance: DOLASETRON MESYLATE
     Route: 042
  24. DECADRON [Concomitant]
     Active Substance: DEXAMETHASONE
     Route: 065
  25. DECADRON [Concomitant]
     Active Substance: DEXAMETHASONE
     Route: 065
  26. NAVELBINE [Concomitant]
     Active Substance: VINORELBINE TARTRATE
     Route: 065
     Dates: start: 200303
  27. ARANESP [Concomitant]
     Active Substance: DARBEPOETIN ALFA
     Route: 042
  28. DOXIL [Concomitant]
     Active Substance: DOXORUBICIN HYDROCHLORIDE
     Route: 065

REACTIONS (14)
  - Abdominal pain [Unknown]
  - Blood urine present [Recovered/Resolved with Sequelae]
  - Epistaxis [Unknown]
  - Neutrophil count abnormal [Unknown]
  - Diarrhoea [Unknown]
  - Fatigue [Unknown]
  - Abdominal distension [Unknown]
  - Ascites [Unknown]
  - Waist circumference increased [Unknown]
  - Off label use [Unknown]
  - Death [Fatal]
  - Disease progression [Unknown]
  - Alopecia [Unknown]
  - Anaemia [Unknown]
